FAERS Safety Report 6770368-X (Version None)
Quarter: 2010Q2

REPORT INFORMATION
  Report Type: 
  Country: None (occurrence: None)
  Receive Date: 20100615
  Receipt Date: 20100607
  Transmission Date: 20101027
  Serious: Yes (Other)
  Sender: FDA-Public Use
  Company Number: US-PFIZER INC-2010071625

PATIENT
  Sex: Male

DRUGS (3)
  1. LIPITOR [Suspect]
     Dosage: 20 MG, UNK
     Dates: start: 20100201
  2. AVODART [Suspect]
     Indication: PROSTATOMEGALY
     Dosage: UNK
     Dates: start: 20090101
  3. SILODOSIN [Suspect]
     Indication: PROSTATOMEGALY
     Dosage: UNK
     Dates: start: 20090101

REACTIONS (5)
  - DRUG INTERACTION [None]
  - MUSCULOSKELETAL PAIN [None]
  - MUSCULOSKELETAL STIFFNESS [None]
  - NECK PAIN [None]
  - PERIPHERAL COLDNESS [None]
